FAERS Safety Report 21734201 (Version 1)
Quarter: 2022Q4

REPORT INFORMATION
  Report Type: Spontaneous
  Country: US (occurrence: None)
  Receive Date: 20221214
  Receipt Date: 20221214
  Transmission Date: 20230113
  Serious: Yes (Hospitalization)
  Sender: FDA-Public Use
  Company Number: None

PATIENT
  Age: 57 Year
  Sex: Male

DRUGS (1)
  1. ABIRATERONE [Suspect]
     Active Substance: ABIRATERONE
     Dosage: FREQUENCY : DAILY;?

REACTIONS (6)
  - Intestinal obstruction [None]
  - Asthenia [None]
  - Fatigue [None]
  - Hyperhidrosis [None]
  - Neuropathy peripheral [None]
  - Malaise [None]

NARRATIVE: CASE EVENT DATE: 20221214
